FAERS Safety Report 20580938 (Version 2)
Quarter: 2022Q1

REPORT INFORMATION
  Report Type: Spontaneous
  Country: JP (occurrence: JP)
  Receive Date: 20220311
  Receipt Date: 20220330
  Transmission Date: 20220423
  Serious: Yes (Hospitalization, Other)
  Sender: FDA-Public Use
  Company Number: JP-JNJFOC-20220319207

PATIENT
  Age: 62 Year
  Sex: Female

DRUGS (19)
  1. HALOMONTH [Suspect]
     Active Substance: HALOPERIDOL DECANOATE
     Indication: Schizophrenia
     Route: 030
  2. HALOMONTH [Suspect]
     Active Substance: HALOPERIDOL DECANOATE
     Indication: Schizophrenia
     Route: 030
  3. HALOMONTH [Suspect]
     Active Substance: HALOPERIDOL DECANOATE
     Indication: Schizophrenia
  4. RISPERDAL [Suspect]
     Active Substance: RISPERIDONE
     Indication: Schizophrenia
     Dosage: DOSE UNKNOWN
     Route: 048
  5. RISPERDAL [Suspect]
     Active Substance: RISPERIDONE
     Indication: Schizophrenia
     Dosage: DOSE UNKNOWNGRADUALLY DECREASED
     Route: 048
  6. HALOMONTH [Suspect]
     Active Substance: HALOPERIDOL DECANOATE
     Indication: Schizophrenia
     Route: 030
  7. HALOMONTH [Suspect]
     Active Substance: HALOPERIDOL DECANOATE
     Route: 030
  8. RISPERDAL [Suspect]
     Active Substance: RISPERIDONE
     Indication: Schizophrenia
     Route: 048
  9. QUETIAPINE [Suspect]
     Active Substance: QUETIAPINE
     Indication: Schizophrenia
     Dosage: DOSE UNKNOWN
     Route: 048
  10. QUETIAPINE [Suspect]
     Active Substance: QUETIAPINE
     Indication: Schizophrenia
     Dosage: DOSE UNKNOWNGRADUALLY DECREASED
     Route: 048
  11. CHLORPROMAZINE HYDROCHLORIDE [Suspect]
     Active Substance: CHLORPROMAZINE HYDROCHLORIDE
     Indication: Schizophrenia
     Dosage: DOSE UNKNOWN
     Route: 065
  12. CHLORPROMAZINE HYDROCHLORIDE [Suspect]
     Active Substance: CHLORPROMAZINE HYDROCHLORIDE
     Indication: Schizophrenia
     Dosage: DOSE UNKNOWNGRADUALLY DECREASED
     Route: 065
  13. ASENAPINE MALEATE [Concomitant]
     Active Substance: ASENAPINE MALEATE
     Dosage: DOSE UNKNOWN
     Route: 048
  14. LEMBOREXANT [Concomitant]
     Active Substance: LEMBOREXANT
     Indication: Insomnia
     Dosage: DOSE UNKNOWN
     Route: 048
  15. LEMBOREXANT [Concomitant]
     Active Substance: LEMBOREXANT
     Indication: Insomnia
     Dosage: DOSE UNKNOWNGRADUALLY INCREASED
     Route: 048
  16. LATUDA [Concomitant]
     Active Substance: LURASIDONE HYDROCHLORIDE
     Route: 048
  17. LATUDA [Concomitant]
     Active Substance: LURASIDONE HYDROCHLORIDE
     Dosage: DOSE UNKNOWNGRADUALLY INCREASED
     Route: 048
  18. LATUDA [Concomitant]
     Active Substance: LURASIDONE HYDROCHLORIDE
     Route: 048
  19. DULOXETINE [Concomitant]
     Active Substance: DULOXETINE
     Indication: Back pain
     Route: 048

REACTIONS (8)
  - Anger [Unknown]
  - Hallucination [Recovered/Resolved]
  - Delusion [Recovered/Resolved]
  - Abnormal behaviour [Unknown]
  - Gait disturbance [Recovered/Resolved]
  - Dizziness [Recovered/Resolved]
  - Hyperthermia [Unknown]
  - Treatment noncompliance [Unknown]
